FAERS Safety Report 15573706 (Version 1)
Quarter: 2018Q4

REPORT INFORMATION
  Report Type: Report from Study
  Country: US (occurrence: US)
  Receive Date: 20181101
  Receipt Date: 20181101
  Transmission Date: 20190205
  Serious: Yes (Other)
  Sender: FDA-Public Use
  Company Number: US-ROCHE-2206266

PATIENT
  Sex: Female

DRUGS (3)
  1. OCREVUS [Suspect]
     Active Substance: OCRELIZUMAB
     Dosage: SECOND HALF DOSE ;ONGOING: NO
     Route: 042
     Dates: start: 20170801
  2. OCREVUS [Suspect]
     Active Substance: OCRELIZUMAB
     Indication: PRIMARY PROGRESSIVE MULTIPLE SCLEROSIS
     Dosage: FIRST HALF DOSE
     Route: 042
     Dates: start: 20170718
  3. OCREVUS [Suspect]
     Active Substance: OCRELIZUMAB
     Dosage: 6 MONTH FULL DOSE ;ONGOING: NO
     Route: 042
     Dates: start: 20180301

REACTIONS (1)
  - Urinary tract infection [Unknown]
